FAERS Safety Report 6719211-5 (Version None)
Quarter: 2010Q2

REPORT INFORMATION
  Report Type: 
  Country: None (occurrence: None)
  Receive Date: 20100510
  Receipt Date: 20100510
  Transmission Date: 20101027
  Serious: No
  Sender: FDA-Public Use
  Company Number: None

PATIENT
  Sex: Female

DRUGS (2)
  1. TARCEVA [Suspect]
     Dosage: 150 MG PO ; TAKE 1 TABLET BY MOUTH DAILY
     Route: 048
     Dates: start: 20100414, end: 20100507
  2. TARCEVA [Suspect]

REACTIONS (1)
  - RASH [None]
